FAERS Safety Report 9559581 (Version 2)
Quarter: 2013Q3

REPORT INFORMATION
  Report Type: Spontaneous
  Country: US (occurrence: US)
  Receive Date: 20130927
  Receipt Date: 20130927
  Transmission Date: 20140515
  Serious: Yes (Other)
  Sender: FDA-Public Use
  Company Number: US-IPSEN BIOPHARMACEUTICALS, INC.-2013-3299

PATIENT
  Age: 59 Year
  Sex: Female
  Weight: 75 kg

DRUGS (4)
  1. DYSPORT [Suspect]
     Indication: SKIN WRINKLING
     Dosage: 45 UNITS
     Route: 065
     Dates: start: 20130729, end: 20130729
  2. PERLANE [Suspect]
     Indication: SKIN COSMETIC PROCEDURE
     Dosage: 3 ML
     Route: 065
     Dates: start: 20130729, end: 20130729
  3. CELEBREX [Concomitant]
     Indication: PRODUCT USED FOR UNKNOWN INDICATION
     Dosage: NOT REPORTED
     Route: 065
  4. SOMA [Concomitant]
     Indication: PRODUCT USED FOR UNKNOWN INDICATION
     Dosage: NOT REPORTED
     Route: 065

REACTIONS (6)
  - Face oedema [Recovering/Resolving]
  - Erythema [Recovered/Resolved]
  - Papule [Recovering/Resolving]
  - Eyelid oedema [Recovering/Resolving]
  - Injection site pain [Recovered/Resolved]
  - Hypersensitivity [Recovering/Resolving]
